FAERS Safety Report 7257305-9 (Version None)
Quarter: 2011Q1

REPORT INFORMATION
  Report Type: 
  Country: None (occurrence: None)
  Receive Date: 20110129
  Receipt Date: 20100707
  Transmission Date: 20110831
  Serious: No
  Sender: FDA-Public Use
  Company Number: US-ABBOTT-10P-163-0656389-00

PATIENT
  Sex: Female
  Weight: 61.29 kg

DRUGS (12)
  1. VICODIN [Concomitant]
     Indication: RHEUMATOID ARTHRITIS
  2. HUMIRA [Suspect]
     Route: 058
     Dates: start: 20100630
  3. ETODOLAC [Concomitant]
     Indication: FIBROMYALGIA
  4. SIMPONI [Suspect]
     Indication: RHEUMATOID ARTHRITIS
     Dates: start: 20100301, end: 20100601
  5. VICODIN [Concomitant]
     Indication: FIBROMYALGIA
  6. FOLIC ACID [Concomitant]
     Indication: VITAMIN SUPPLEMENTATION
  7. HUMIRA [Suspect]
     Indication: RHEUMATOID ARTHRITIS
     Route: 058
     Dates: start: 20080101, end: 20100201
  8. ARTHROTECH [Concomitant]
     Indication: RHEUMATOID ARTHRITIS
  9. ARTHROTECH [Concomitant]
     Indication: FIBROMYALGIA
  10. TRAZODONE HCL [Concomitant]
     Indication: INSOMNIA
  11. ETODOLAC [Concomitant]
     Indication: RHEUMATOID ARTHRITIS
  12. METHOTREXATE [Concomitant]
     Indication: RHEUMATOID ARTHRITIS

REACTIONS (5)
  - ARTHRALGIA [None]
  - TINNITUS [None]
  - CONFUSIONAL STATE [None]
  - FATIGUE [None]
  - HYPOAESTHESIA FACIAL [None]
